FAERS Safety Report 6863165-8 (Version None)
Quarter: 2010Q3

REPORT INFORMATION
  Report Type: 
  Country: None (occurrence: None)
  Receive Date: 20100721
  Receipt Date: 20100719
  Transmission Date: 20110219
  Serious: Yes (Other)
  Sender: FDA-Public Use
  Company Number: US-BRISTOL-MYERS SQUIBB COMPANY-15199482

PATIENT
  Age: 49 Year
  Sex: Male

DRUGS (9)
  1. ONGLYZA [Suspect]
     Dates: start: 20100223
  2. GLYBURIDE [Concomitant]
  3. METFORMIN [Concomitant]
  4. ASPIRIN [Concomitant]
  5. INDOMETHACIN [Concomitant]
  6. LISINOPRIL [Concomitant]
  7. METOPROLOL [Concomitant]
  8. PLAVIX [Concomitant]
  9. SIMVASTATIN [Concomitant]

REACTIONS (1)
  - ANGIOEDEMA [None]
